FAERS Safety Report 16600261 (Version 1)
Quarter: 2019Q3

REPORT INFORMATION
  Report Type: Spontaneous
  Country: DE (occurrence: DE)
  Receive Date: 20190720
  Receipt Date: 20190720
  Transmission Date: 20191004
  Serious: Yes (Hospitalization)
  Sender: FDA-Public Use
  Company Number: DE-TEVA-2019-DE-1079189

PATIENT
  Age: 31 Year
  Sex: Female
  Weight: 48 kg

DRUGS (8)
  1. ANTITHYMOCYTE IMMUNOGLOBULIN [Suspect]
     Active Substance: THYMOCYTE IMMUNE GLOBULIN NOS
     Dosage: 7200 MG, FROM 27.02 TO 02.03, SOLUTION FOR INJECTION / INFUSION
  2. COLECALCIFEROL [Concomitant]
     Active Substance: CHOLECALCIFEROL
     Dosage: 20000 IE, ONCE A WEEK, CAPSULES
     Route: 048
  3. SALOFALK 500MG [Concomitant]
     Dosage: 500 MG, 0-0-1-0, SUPPOSITORIEN
     Route: 054
  4. CIPROFLOXACIN. [Concomitant]
     Active Substance: CIPROFLOXACIN
     Dosage: NK NK, NK, TABLET
     Route: 048
  5. CICLOSPORIN [Suspect]
     Active Substance: CYCLOSPORINE
     Dosage: 350 MG, 1-0-1-0, TABLET
     Route: 048
  6. PANTOPRAZOL [Concomitant]
     Active Substance: PANTOPRAZOLE SODIUM
     Dosage: 40 MG, 1-0-0-0, TABLET
     Route: 048
  7. PREDNISOLON [Suspect]
     Active Substance: PREDNISOLONE
     Dosage: 20 MG, 1-0-0-0, TABLET
     Route: 048
  8. NUTRIFLEX LIPID SPECIAL [Concomitant]
     Dosage: 4.11 | 5.48 | 3.99 | 3.42 | 6.15 | 3.18 | 1 | 4.51 | 4.73 | 2.19 | 8.49 | 2.63 | 6.14 | 2.89 | 5.95
     Route: 051

REACTIONS (5)
  - Headache [Unknown]
  - Diarrhoea [Unknown]
  - Photosensitivity reaction [Unknown]
  - Chills [Unknown]
  - Nausea [Unknown]
